FAERS Safety Report 8819409 (Version 1)
Quarter: 2012Q4

REPORT INFORMATION
  Report Type: Spontaneous
  Country: US (occurrence: None)
  Receive Date: 20121004
  Receipt Date: 20121004
  Transmission Date: 20130627
  Serious: No
  Sender: FDA-Public Use
  Company Number: None

PATIENT
  Age: 65 Year
  Sex: Female
  Weight: 44.5 kg

DRUGS (1)
  1. SODIUM FERRIC GLUCONATE [Suspect]
     Dosage: 250 MG ONCE IV
     Route: 042
     Dates: start: 20120917, end: 20120917

REACTIONS (9)
  - Confusional state [None]
  - Hypotension [None]
  - Dyskinesia [None]
  - Colour blindness acquired [None]
  - Rash [None]
  - Urticaria [None]
  - Pruritus [None]
  - Infusion related reaction [None]
  - Hypersensitivity [None]
